FAERS Safety Report 21133921 (Version 1)
Quarter: 2022Q3

REPORT INFORMATION
  Report Type: Spontaneous
  Country: US (occurrence: US)
  Receive Date: 20220726
  Receipt Date: 20220726
  Transmission Date: 20221027
  Serious: No
  Sender: FDA-Public Use
  Company Number: US-OYSTER POINT PHARMA, INC.-2022OYS00412

PATIENT
  Sex: Female
  Weight: 79.819 kg

DRUGS (5)
  1. TYRVAYA [Suspect]
     Active Substance: VARENICLINE TARTRATE
     Indication: Dry eye
     Dosage: 1 SPRAY IN EACH NOSTRIL, 2X/DAY (12 HOURS APART)
     Route: 045
     Dates: start: 202203, end: 202204
  2. TYRVAYA [Suspect]
     Active Substance: VARENICLINE TARTRATE
     Dosage: 1 SPRAY IN EACH NOSTRIL, 2X/DAY (12 HOURS APART)
     Route: 045
     Dates: start: 202204
  3. LEVOTHYROXINE [Concomitant]
     Active Substance: LEVOTHYROXINE
     Dosage: 1 TABLET, 1X/DAY FOR 5 DAYS
  4. LEVOTHYROXINE [Concomitant]
     Active Substance: LEVOTHYROXINE
     Dosage: HALF OF TABLET, 1X/DAY FOR 2 DAYS
  5. ATORVASTATIN [Concomitant]
     Active Substance: ATORVASTATIN
     Dosage: 20 MG, 1X/DAY

REACTIONS (7)
  - Retching [Unknown]
  - Visual impairment [Unknown]
  - Upper-airway cough syndrome [Unknown]
  - Therapeutic product effect decreased [Not Recovered/Not Resolved]
  - Cough [Unknown]
  - Sneezing [Unknown]
  - Nasal discomfort [Unknown]

NARRATIVE: CASE EVENT DATE: 20220101
